FAERS Safety Report 7822321-2 (Version None)
Quarter: 2011Q4

REPORT INFORMATION
  Report Type: 
  Country: None (occurrence: None)
  Receive Date: 20111018
  Receipt Date: 20101208
  Transmission Date: 20120403
  Serious: No
  Sender: FDA-Public Use
  Company Number: US-ASTRAZENECA-2010SE58251

PATIENT
  Age: 58 Year
  Sex: Male
  Weight: 108.9 kg

DRUGS (2)
  1. VENTOLIN [Concomitant]
  2. SYMBICORT [Suspect]
     Indication: CHRONIC OBSTRUCTIVE PULMONARY DISEASE
     Dosage: 2 PUFFS BID
     Route: 055
     Dates: start: 20080101

REACTIONS (2)
  - DISABILITY [None]
  - ASTHMA [None]
